FAERS Safety Report 20457173 (Version 1)
Quarter: 2022Q1

REPORT INFORMATION
  Report Type: Spontaneous
  Country: US (occurrence: US)
  Receive Date: 20220210
  Receipt Date: 20220210
  Transmission Date: 20220423
  Serious: No
  Sender: FDA-Public Use
  Company Number: US-PERRIGO-21US032489

PATIENT

DRUGS (3)
  1. CETIRIZINE HYDROCHLORIDE [Suspect]
     Active Substance: CETIRIZINE HYDROCHLORIDE
     Indication: Perennial allergy
     Dosage: 10 MG, QD
     Route: 048
     Dates: start: 202104
  2. CETIRIZINE HYDROCHLORIDE [Suspect]
     Active Substance: CETIRIZINE HYDROCHLORIDE
     Indication: Cough
     Dosage: 1/2 TABLET, QD
     Route: 048
  3. CETIRIZINE HYDROCHLORIDE [Suspect]
     Active Substance: CETIRIZINE HYDROCHLORIDE
     Dosage: 1/3 TABLET, QD
     Route: 048
     Dates: end: 202112

REACTIONS (9)
  - Withdrawal syndrome [Unknown]
  - Pruritus [Recovering/Resolving]
  - Feeling abnormal [Not Recovered/Not Resolved]
  - Anger [Recovered/Resolved]
  - Irritability [Recovered/Resolved]
  - Dizziness [Unknown]
  - Fatigue [Unknown]
  - Wrong technique in product usage process [Recovered/Resolved]
  - Underdose [Recovered/Resolved]
